FAERS Safety Report 8231099-2 (Version None)
Quarter: 2012Q1

REPORT INFORMATION
  Report Type: 
  Country: None (occurrence: None)
  Receive Date: 20120322
  Receipt Date: 20120322
  Transmission Date: 20120608
  Serious: No
  Sender: FDA-Public Use
  Company Number: None

PATIENT
  Sex: Female
  Weight: 72.574 kg

DRUGS (2)
  1. NEXIUM [Suspect]
     Indication: DYSPEPSIA
     Dates: start: 20040101, end: 20110401
  2. NEXIUM [Suspect]
     Indication: GASTROOESOPHAGEAL REFLUX DISEASE
     Dates: start: 20040101, end: 20110401

REACTIONS (2)
  - OSTEOPENIA [None]
  - OSTEOPOROSIS [None]
